FAERS Safety Report 7475304-9 (Version None)
Quarter: 2011Q2

REPORT INFORMATION
  Report Type: 
  Country: None (occurrence: None)
  Receive Date: 20110512
  Receipt Date: 20110503
  Transmission Date: 20111010
  Serious: Yes (Life-Threatening, Hospitalization, Other)
  Sender: FDA-Public Use
  Company Number: FR-MPIJNJ-2011-01833

PATIENT

DRUGS (5)
  1. DEXAMETHASONE [Concomitant]
     Indication: MULTIPLE MYELOMA
     Route: 065
  2. FLIXOTIDE [Concomitant]
     Route: 065
  3. VENTOLIN [Concomitant]
     Dosage: UNK
     Route: 065
  4. VELCADE [Suspect]
     Indication: MULTIPLE MYELOMA
     Dosage: UNK
     Route: 042
  5. FORADIL [Concomitant]
     Route: 065

REACTIONS (3)
  - ACUTE RESPIRATORY FAILURE [None]
  - ASTHMA [None]
  - RESPIRATORY TRACT INFECTION [None]
